FAERS Safety Report 19809342 (Version 1)
Quarter: 2021Q3

REPORT INFORMATION
  Report Type: Spontaneous
  Country: DE (occurrence: DE)
  Receive Date: 20210909
  Receipt Date: 20210909
  Transmission Date: 20211014
  Serious: Yes (Hospitalization)
  Sender: FDA-Public Use
  Company Number: NVSC2021DE200275

PATIENT
  Age: 63 Year
  Sex: Male
  Weight: 95 kg

DRUGS (10)
  1. CALCITRIOL. [Concomitant]
     Active Substance: CALCITRIOL
     Indication: PRODUCT USED FOR UNKNOWN INDICATION
     Dosage: 0.25 UG (2?0?0?0, KAPSELN)
     Route: 048
  2. CARBOPLATIN. [Suspect]
     Active Substance: CARBOPLATIN
     Indication: PRODUCT USED FOR UNKNOWN INDICATION
     Dosage: 311.1 MG (NACH SCHEMA, INJEKTIONS?/INFUSIONSLOSUNG)
     Route: 042
  3. ISPAGHULA [Concomitant]
     Active Substance: HERBALS\PLANTAGO OVATA SEED
     Indication: PRODUCT USED FOR UNKNOWN INDICATION
     Dosage: 3.25 G (1?0?1?0, GSE)
     Route: 048
  4. SEMAGLUTIDE [Concomitant]
     Active Substance: SEMAGLUTIDE
     Indication: PRODUCT USED FOR UNKNOWN INDICATION
     Dosage: 2 MG (NACH SCHEMA, FERTIGSPRITZEN)
     Route: 058
  5. PANTOPRAZOL [Concomitant]
     Active Substance: PANTOPRAZOLE SODIUM
     Indication: PRODUCT USED FOR UNKNOWN INDICATION
     Dosage: 40 MG (1?0?0?0, RETARD?TABLETTEN)
     Route: 048
  6. GEMCITABINE. [Suspect]
     Active Substance: GEMCITABINE
     Indication: PRODUCT USED FOR UNKNOWN INDICATION
     Dosage: 2472 MG (NACH SCHEMA, INJEKTIONS?/INFUSIONSL?SUNG)
     Route: 042
  7. LOPERAMID [Concomitant]
     Active Substance: LOPERAMIDE
     Indication: PRODUCT USED FOR UNKNOWN INDICATION
     Dosage: 2 MG (2?2?2?0, KAPSELN)
     Route: 048
  8. PREGABALIN. [Concomitant]
     Active Substance: PREGABALIN
     Indication: PRODUCT USED FOR UNKNOWN INDICATION
     Dosage: 150 MG (0?0?1?0, KAPSELN)
     Route: 048
  9. TORASEMID [Concomitant]
     Active Substance: TORSEMIDE
     Indication: PRODUCT USED FOR UNKNOWN INDICATION
     Dosage: 10 MG (2?0?0?0, TABLETTEN)
     Route: 048
  10. DALTEPARIN [Concomitant]
     Active Substance: DALTEPARIN
     Indication: PRODUCT USED FOR UNKNOWN INDICATION
     Dosage: UNK (5000 IE, 0?0?1?0, FERTIGSPRITZEN)
     Route: 058

REACTIONS (3)
  - Pain [Unknown]
  - Pyrexia [Unknown]
  - Chills [Unknown]
